FAERS Safety Report 23982741 (Version 2)
Quarter: 2024Q3

REPORT INFORMATION
  Report Type: Spontaneous
  Country: CA (occurrence: CA)
  Receive Date: 20240617
  Receipt Date: 20240701
  Transmission Date: 20241017
  Serious: Yes (Hospitalization, Other)
  Sender: TEVA
  Company Number: CA-TEVA-VS-3202497

PATIENT
  Age: 57 Year
  Sex: Male

DRUGS (6)
  1. PREDNISONE [Suspect]
     Active Substance: PREDNISONE
     Indication: Morvan syndrome
     Route: 048
  2. PREDNISONE [Suspect]
     Active Substance: PREDNISONE
     Indication: Morvan syndrome
     Route: 048
  3. MYCOPHENOLATE MOFETIL [Suspect]
     Active Substance: MYCOPHENOLATE MOFETIL
     Indication: Morvan syndrome
     Route: 048
  4. TIMOLOL [Concomitant]
     Active Substance: TIMOLOL
     Indication: Product used for unknown indication
     Route: 065
  5. DIFLUPREDNATE [Suspect]
     Active Substance: DIFLUPREDNATE
     Indication: Uveitis
     Route: 047
     Dates: start: 2017
  6. IMMUNE GLOBULIN [Concomitant]
     Indication: Morvan syndrome
     Route: 042

REACTIONS (3)
  - Pneumonia haemophilus [Unknown]
  - Uveitis [Recovering/Resolving]
  - Rebound effect [Recovering/Resolving]

NARRATIVE: CASE EVENT DATE: 20170101
